FAERS Safety Report 6170191-3 (Version None)
Quarter: 2009Q2

REPORT INFORMATION
  Report Type: 
  Country: None (occurrence: None)
  Receive Date: 20090427
  Receipt Date: 20090427
  Transmission Date: 20091009
  Serious: No
  Sender: FDA-Public Use
  Company Number: None

PATIENT
  Sex: Female
  Weight: 58.0604 kg

DRUGS (2)
  1. DOXYCYCLINE HCL [Suspect]
     Indication: ACNE
     Dosage: 100 MG TAB 1 X DAILY PO
     Route: 048
     Dates: start: 20090422
  2. DOXYCYCLINE HCL [Suspect]
     Indication: ROSACEA
     Dosage: 100 MG TAB 1 X DAILY PO
     Route: 048
     Dates: start: 20090422

REACTIONS (4)
  - DIARRHOEA [None]
  - NAUSEA [None]
  - PRODUCT SUBSTITUTION ISSUE [None]
  - VOMITING [None]
